FAERS Safety Report 7391584-2 (Version None)
Quarter: 2011Q2

REPORT INFORMATION
  Report Type: 
  Country: None (occurrence: None)
  Receive Date: 20110404
  Receipt Date: 20110330
  Transmission Date: 20111010
  Serious: Yes (Death)
  Sender: FDA-Public Use
  Company Number: PHHY2011BR26262

PATIENT
  Sex: Male

DRUGS (5)
  1. EXELON [Suspect]
     Indication: DEMENTIA ALZHEIMER'S TYPE
     Dosage: 1 DF, BID
     Route: 048
     Dates: start: 20100501
  2. PROPRANOLOL [Concomitant]
  3. ALENIA [Concomitant]
     Indication: BRONCHITIS
  4. CAPTOPRIL [Concomitant]
     Dosage: 0.25 MG, UNK
  5. DIGOXIN [Concomitant]
     Indication: ARRHYTHMIA
     Dosage: 1 DF, QD

REACTIONS (1)
  - DEATH [None]
